FAERS Safety Report 19954683 (Version 4)
Quarter: 2024Q4

REPORT INFORMATION
  Report Type: Spontaneous
  Country: JP (occurrence: JP)
  Receive Date: 20211014
  Receipt Date: 20241129
  Transmission Date: 20250115
  Serious: Yes (Other)
  Sender: ALEXION PHARMACEUTICALS
  Company Number: 2021A765677

PATIENT
  Age: 55 Year

DRUGS (4)
  1. TAGRISSO [Suspect]
     Active Substance: OSIMERTINIB
     Indication: Non-small cell lung cancer
     Dosage: 80 MILLIGRAM, QD
  2. TAGRISSO [Suspect]
     Active Substance: OSIMERTINIB
     Dosage: 40 MILLIGRAM, QD
  3. HEPARINOID [Concomitant]
     Indication: Chemotherapy side effect prophylaxis
     Dosage: DOSE UNKNOWN
  4. HACHIAZULE [Concomitant]
     Indication: Chemotherapy side effect prophylaxis
     Dosage: DOSE UNKNOWN

REACTIONS (7)
  - Electrocardiogram QT prolonged [Unknown]
  - Hyperkalaemia [Recovered/Resolved]
  - Hypokalaemia [Unknown]
  - Rash [Unknown]
  - Aspartate aminotransferase increased [Unknown]
  - Diarrhoea [Unknown]
  - Paronychia [Recovering/Resolving]
